FAERS Safety Report 7600050-8 (Version None)
Quarter: 2011Q3

REPORT INFORMATION
  Report Type: 
  Country: None (occurrence: None)
  Receive Date: 20110706
  Receipt Date: 20110706
  Transmission Date: 20111222
  Serious: No
  Sender: FDA-Public Use
  Company Number: None

PATIENT
  Sex: Male
  Weight: 102.0593 kg

DRUGS (1)
  1. EXCEDRIN (MIGRAINE) [Suspect]
     Indication: HEADACHE
     Dosage: 2 Q 6 HOURS PO
     Route: 048
     Dates: start: 20110615, end: 20110703

REACTIONS (2)
  - SOMNOLENCE [None]
  - PRODUCT TAMPERING [None]
